FAERS Safety Report 4302310-5 (Version None)
Quarter: 2004Q1

REPORT INFORMATION
  Report Type: 
  Country: None (occurrence: None)
  Receive Date: 20040223
  Receipt Date: 20040210
  Transmission Date: 20041129
  Serious: Yes (Life-Threatening, Other)
  Sender: FDA-Public Use
  Company Number: WAES 0402DEU00051

PATIENT
  Age: 62 Year
  Sex: Male
  Weight: 72 kg

DRUGS (36)
  1. AMIODARONE HCL [Suspect]
  2. AMLODIPINE MALEATE [Suspect]
  3. ASPIRIN [Suspect]
  4. ATORVASTATIN CALCIUM [Suspect]
     Indication: HYPERLIPIDAEMIA
  5. CAPTOPRIL [Suspect]
  6. CARVEDILOL [Suspect]
  7. CEFOTIAM HYDROCHLORIDE [Suspect]
  8. CLOPIDOGREL BISULFATE [Suspect]
  9. DEXAMETHASONE [Suspect]
  10. DIAZEPAM [Suspect]
  11. DICLOFENAC [Suspect]
  12. DOPAMINE HYDROCHLORIDE [Suspect]
  13. ENALAPRIL MALEATE [Suspect]
  14. EPINEPHRINE HYDROCHLORIDE [Suspect]
  15. ETOMIDATE [Suspect]
  16. FLUNITRAZEPAM [Suspect]
  17. FUROSEMIDE [Suspect]
  18. ISOSORBIDE DINITRATE [Suspect]
  19. LIDOCAINE [Suspect]
  20. LORMETAZEPAM [Suspect]
  21. COZAAR [Suspect]
     Route: 048
  22. METOPROLOL [Suspect]
  23. MOLSIDOMINE [Suspect]
  24. NIFEDIPINE [Suspect]
  25. NITROGLYCERIN [Suspect]
  26. NOREPINEPHRINE HYDROCHLORIDE [Suspect]
  27. OMEPRAZOLE [Suspect]
  28. PANCURONIUM BROMIDE [Suspect]
  29. PIPERACILLIN SODIUM AND TAZOBACTAM SODIUM [Suspect]
  30. PIRITRAMIDE [Suspect]
  31. PROPOFOL [Suspect]
  32. ZOCOR [Suspect]
     Indication: HYPERLIPIDAEMIA
     Route: 048
  33. SUFENTANIL [Suspect]
  34. TORSEMIDE [Suspect]
  35. URAPIDIL [Suspect]
  36. VERAPAMIL [Suspect]

REACTIONS (4)
  - DRUG INTERACTION [None]
  - INFARCTION [None]
  - RHABDOMYOLYSIS [None]
  - VENTRICULAR FIBRILLATION [None]
